FAERS Safety Report 6134603-3 (Version None)
Quarter: 2009Q1

REPORT INFORMATION
  Report Type: 
  Country: None (occurrence: None)
  Receive Date: 20090327
  Receipt Date: 20090320
  Transmission Date: 20090719
  Serious: Yes (Other)
  Sender: FDA-Public Use
  Company Number: DE-ABBOTT-05P-062-0303879-01

PATIENT
  Sex: Female
  Weight: 60 kg

DRUGS (9)
  1. HUMIRA [Suspect]
     Indication: RHEUMATOID ARTHRITIS
     Route: 058
     Dates: start: 20040225, end: 20040407
  2. HUMIRA [Suspect]
     Dates: start: 20040927
  3. BISOPROLOL FUMARATE [Concomitant]
     Indication: HYPERTENSION
     Dates: start: 20010701
  4. ESCILINE [Concomitant]
     Indication: HYPERTENSION
     Dates: start: 20010101, end: 20031001
  5. ENALAPRIL [Concomitant]
     Indication: HYPERTENSION
     Dates: start: 20030101
  6. METHOTREXATE [Concomitant]
     Indication: RHEUMATOID ARTHRITIS
     Dates: start: 19950201
  7. CHENTROSEINE [Concomitant]
     Indication: OSTEOPOROSIS
     Dates: start: 20030720, end: 20040407
  8. PREDNISOLONE [Concomitant]
     Indication: RHEUMATOID ARTHRITIS
     Dates: start: 20030701
  9. COMMERCIAL HUMIRA [Concomitant]
     Indication: RHEUMATOID ARTHRITIS
     Dates: start: 20031028

REACTIONS (1)
  - DIVERTICULAR PERFORATION [None]
